FAERS Safety Report 9636216 (Version 1)
Quarter: 2013Q4

REPORT INFORMATION
  Report Type: Spontaneous
  Country: US (occurrence: US)
  Receive Date: 20131021
  Receipt Date: 20131021
  Transmission Date: 20140711
  Serious: Yes (Other)
  Sender: FDA-Public Use
  Company Number: US-BRISTOL-MYERS SQUIBB COMPANY-19548569

PATIENT
  Age: 52 Year
  Sex: Male
  Weight: 105.67 kg

DRUGS (2)
  1. ABATACEPT SUBQ INJECTION 125MG/ML [Suspect]
     Indication: RHEUMATOID ARTHRITIS
     Dosage: ORENCIA 125MG/ML PFS (4 PACK),1DF: 125MG/ML,RESUMED ON 17SEP13
     Route: 058
  2. METHOTREXATE TABS [Concomitant]

REACTIONS (2)
  - Arthropathy [Unknown]
  - Back disorder [Unknown]
